FAERS Safety Report 23703543 (Version 2)
Quarter: 2024Q2

REPORT INFORMATION
  Report Type: Spontaneous
  Country: CN (occurrence: CN)
  Receive Date: 20240403
  Receipt Date: 20240410
  Transmission Date: 20240715
  Serious: Yes (Hospitalization, Disabling)
  Sender: FDA-Public Use
  Company Number: CN-Eisai-EC-2024-162851

PATIENT
  Age: 57 Year
  Sex: Female
  Weight: 76.6 kg

DRUGS (4)
  1. HALAVEN [Suspect]
     Active Substance: ERIBULIN MESYLATE
     Indication: Leiomyosarcoma
     Route: 042
     Dates: start: 20240312
  2. HALAVEN [Suspect]
     Active Substance: ERIBULIN MESYLATE
     Indication: Hepatic cancer metastatic
  3. CADONILIMAB [Concomitant]
     Active Substance: CADONILIMAB
     Indication: Leiomyosarcoma
     Route: 041
     Dates: start: 20240312
  4. CADONILIMAB [Concomitant]
     Active Substance: CADONILIMAB
     Indication: Hepatic cancer metastatic

REACTIONS (3)
  - Dermatitis allergic [Recovering/Resolving]
  - Infection [Recovering/Resolving]
  - Myelosuppression [Recovering/Resolving]

NARRATIVE: CASE EVENT DATE: 20240319
